FAERS Safety Report 6864282-9 (Version None)
Quarter: 2010Q3

REPORT INFORMATION
  Report Type: 
  Country: None (occurrence: None)
  Receive Date: 20100721
  Receipt Date: 20080319
  Transmission Date: 20110219
  Serious: No
  Sender: FDA-Public Use
  Company Number: US-PFIZER INC-2008025878

PATIENT
  Sex: Female
  Weight: 88.5 kg

DRUGS (5)
  1. CHANTIX [Suspect]
     Indication: SMOKING CESSATION THERAPY
     Route: 048
     Dates: start: 20080112, end: 20080315
  2. METFORMIN [Concomitant]
  3. LISINOPRIL [Concomitant]
  4. CHOLESTEROL [Concomitant]
  5. PAXIL [Concomitant]

REACTIONS (2)
  - ANGER [None]
  - HEADACHE [None]
